FAERS Safety Report 4412146-2 (Version None)
Quarter: 2004Q2

REPORT INFORMATION
  Report Type: 
  Country: None (occurrence: None)
  Receive Date: 20040630
  Receipt Date: 20040416
  Transmission Date: 20050107
  Serious: No
  Sender: FDA-Public Use
  Company Number: 04P-163-0257827-00

PATIENT
  Age: 76 Year
  Sex: Female
  Weight: 72.5755 kg

DRUGS (8)
  1. HUMIRA [Suspect]
     Indication: RHEUMATOID ARTHRITIS
     Dosage: 40 MG, 1 IN 2 WK, SUBCUTANEOUS
     Route: 058
     Dates: start: 20031101, end: 20040301
  2. SERTRALINE HYDROCHLORIDE [Concomitant]
  3. ATENOLOL [Concomitant]
  4. CYPROHEPTADINE HYDROCHLORIDE) [Concomitant]
  5. NABUMETONE [Concomitant]
  6. HYDROXYCHLOROQUINE PHOSPHATE [Concomitant]
  7. CALCIUM WITH VITAMIN D [Concomitant]
  8. PREGAMAL [Concomitant]

REACTIONS (2)
  - HEADACHE [None]
  - RASH [None]
